FAERS Safety Report 6138335-7 (Version None)
Quarter: 2009Q1

REPORT INFORMATION
  Report Type: 
  Country: None (occurrence: None)
  Receive Date: 20090331
  Receipt Date: 20090318
  Transmission Date: 20090719
  Serious: Yes (Hospitalization)
  Sender: FDA-Public Use
  Company Number: FR-ROCHE-622843

PATIENT
  Sex: Male

DRUGS (3)
  1. PEG-INTERFERON ALFA 2A (RO 25-8310) [Suspect]
     Dosage: PERMANENTLY STOPPED.
     Route: 058
     Dates: start: 20081202, end: 20090224
  2. RIBAVIRIN [Suspect]
     Dosage: DOSE OF EITHER 1000-1200 MG (DEPENDING ON YOUR WEIGHT) 2 TIMES PER DAY FOR 48 WKS. PERMANENT STOPPED
     Route: 048
     Dates: start: 20081202, end: 20090227
  3. BLINDED TELAPREVIR [Suspect]
     Dosage: PERMANENTLY STOPPED.
     Route: 048
     Dates: start: 20081202, end: 20090227

REACTIONS (2)
  - HISTIOCYTOSIS HAEMATOPHAGIC [None]
  - SEPSIS [None]
